FAERS Safety Report 4739075-9 (Version None)
Quarter: 2005Q3

REPORT INFORMATION
  Report Type: 
  Country: None (occurrence: None)
  Receive Date: 20050810
  Receipt Date: 20050506
  Transmission Date: 20060218
  Serious: Yes (Other)
  Sender: FDA-Public Use
  Company Number: US-GLAXOSMITHKLINE-A0557534A

PATIENT
  Sex: Male

DRUGS (3)
  1. PAXIL [Suspect]
     Route: 048
     Dates: start: 20050401
  2. PAXIL [Suspect]
     Dosage: 20MG UNKNOWN
     Route: 048
     Dates: end: 20050401
  3. NO CONCURRENT MEDICATION [Concomitant]

REACTIONS (4)
  - AGGRESSION [None]
  - HYPERHIDROSIS [None]
  - INFLUENZA LIKE ILLNESS [None]
  - INSOMNIA [None]
